FAERS Safety Report 12282810 (Version 1)
Quarter: 2016Q2

REPORT INFORMATION
  Report Type: Report from Study
  Country: US (occurrence: US)
  Receive Date: 20160419
  Receipt Date: 20160419
  Transmission Date: 20160815
  Serious: No
  Sender: FDA-Public Use
  Company Number: US-AMGEN-USASL2016008164

PATIENT
  Age: 66 Year
  Sex: Female

DRUGS (5)
  1. CORLANOR [Suspect]
     Active Substance: IVABRADINE HYDROCHLORIDE
     Dosage: 2.5 MG, BID
     Route: 065
     Dates: start: 201601, end: 201601
  2. CORLANOR [Suspect]
     Active Substance: IVABRADINE HYDROCHLORIDE
     Dosage: 2.5 MG, ONCE IN THE MORNING
     Route: 065
     Dates: start: 201601
  3. CANDESARTAN [Concomitant]
     Active Substance: CANDESARTAN
     Dosage: UNK, QD
  4. CANDESARTAN [Concomitant]
     Active Substance: CANDESARTAN
     Dosage: UNK, TID
  5. CORLANOR [Suspect]
     Active Substance: IVABRADINE HYDROCHLORIDE
     Indication: PRODUCT USED FOR UNKNOWN INDICATION
     Dosage: 2.5 MG,  QAM FOR THE THREE DAYS
     Route: 065
     Dates: start: 201601, end: 201601

REACTIONS (8)
  - Palpitations [Unknown]
  - Syncope [Not Recovered/Not Resolved]
  - Pollakiuria [Unknown]
  - Blood pressure increased [Unknown]
  - Dyspnoea [Unknown]
  - Tachycardia [Unknown]
  - Chest pain [Not Recovered/Not Resolved]
  - Dizziness [Unknown]

NARRATIVE: CASE EVENT DATE: 201601
